FAERS Safety Report 8488122-X (Version None)
Quarter: 2012Q3

REPORT INFORMATION
  Report Type: 
  Country: None (occurrence: None)
  Receive Date: 20120705
  Receipt Date: 20120625
  Transmission Date: 20120928
  Serious: Yes (Hospitalization)
  Sender: FDA-Public Use
  Company Number: US-BAYER-2012-062592

PATIENT
  Age: 34 Year
  Sex: Female
  Weight: 165.53 kg

DRUGS (12)
  1. SAVELLA [Concomitant]
     Indication: FIBROMYALGIA
     Dosage: 12.5-25-50, TWO TABLETS DAILY
     Route: 048
     Dates: start: 20101201
  2. MELOXICAM [Concomitant]
     Indication: FIBROMYALGIA
     Dosage: 15 MG, UNK
     Route: 048
     Dates: start: 20101028, end: 20101230
  3. NITROGLYCERIN [Concomitant]
  4. YAZ [Suspect]
     Indication: CONTRACEPTION
     Dosage: UNK
     Dates: start: 20090623, end: 20100306
  5. VITAMIN D2 [Concomitant]
     Indication: VITAMIN D DEFICIENCY
     Dosage: 50000 U, EVERY WEEK
     Route: 048
     Dates: start: 20100914
  6. LYRICA [Concomitant]
     Dosage: 225 MG, DAILY
     Route: 048
     Dates: start: 20101022
  7. DARVOCET-N 50 [Concomitant]
     Indication: PAIN
     Dosage: EVERY 4-6 HRS AS NEEDED
     Route: 048
     Dates: start: 20100916
  8. PERCOCET [Concomitant]
     Indication: PAIN
     Dosage: UNK
     Route: 048
     Dates: start: 20101210
  9. LOPRESSOR [Concomitant]
     Route: 042
  10. ASPIRIN [Concomitant]
  11. DROSPIRENONE AND ETHINYL ESTRADIOL [Suspect]
     Indication: CONTRACEPTION
     Dosage: UNK
     Dates: start: 20100601, end: 20110102
  12. OMEPRAZOLE [Concomitant]
     Dosage: 20 MG, DAILY
     Route: 048
     Dates: start: 20101028

REACTIONS (4)
  - DYSPNOEA [None]
  - CHEST PAIN [None]
  - ATELECTASIS [None]
  - PULMONARY EMBOLISM [None]
